FAERS Safety Report 9855635 (Version 2)
Quarter: 2014Q1

REPORT INFORMATION
  Report Type: Spontaneous
  Country: US (occurrence: US)
  Receive Date: 20140130
  Receipt Date: 20140206
  Transmission Date: 20141002
  Serious: No
  Sender: FDA-Public Use
  Company Number: US-BAYER-2014-002292

PATIENT
  Age: 76 Year
  Sex: Male

DRUGS (1)
  1. NEXAVAR [Suspect]
     Dosage: 2 TABLETS DAILY
     Dates: start: 201312

REACTIONS (3)
  - Wrong technique in drug usage process [None]
  - Throat irritation [None]
  - Oropharyngeal discomfort [None]
